FAERS Safety Report 5762334-8 (Version None)
Quarter: 2008Q2

REPORT INFORMATION
  Report Type: 
  Country: None (occurrence: None)
  Receive Date: 20080609
  Receipt Date: 20080602
  Transmission Date: 20081010
  Serious: Yes (Death, Other)
  Sender: FDA-Public Use
  Company Number: PHHO2008TR04593

PATIENT
  Sex: Female
  Weight: 65 kg

DRUGS (3)
  1. TASIGNA [Suspect]
     Indication: CHRONIC MYELOID LEUKAEMIA
     Dosage: 800 MG, UNK
     Route: 048
     Dates: start: 20080226
  2. GLEEVEC [Suspect]
     Dosage: 400 MG, QD
     Dates: start: 20060228
  3. GLEEVEC [Suspect]
     Dosage: 800 MG, QD
     Dates: end: 20080226

REACTIONS (2)
  - BRAIN OEDEMA [None]
  - HEADACHE [None]
